FAERS Safety Report 12597678 (Version 1)
Quarter: 2016Q3

REPORT INFORMATION
  Report Type: Spontaneous
  Country: US (occurrence: None)
  Receive Date: 20160726
  Receipt Date: 20160726
  Transmission Date: 20161109
  Serious: Yes (Hospitalization)
  Sender: FDA-Public Use
  Company Number: None

PATIENT
  Age: 66 Year
  Sex: Female
  Weight: 49.9 kg

DRUGS (7)
  1. IBUPROFEN. [Concomitant]
     Active Substance: IBUPROFEN
  2. ALPRAZOLAM. [Concomitant]
     Active Substance: ALPRAZOLAM
  3. MULTIVITAMINS + MINERALS PLUS LUTEIN [Concomitant]
     Active Substance: MINERALS\VITAMINS
  4. SILENOR [Suspect]
     Active Substance: DOXEPIN HYDROCHLORIDE
     Indication: INSOMNIA
     Dosage: 6 MG 1 PILL AT BEDTIME 1 X/DAY (ONE TIME ONLY) MOUTH
     Route: 048
     Dates: start: 20160516, end: 20160516
  5. ATORVASTATIN [Concomitant]
     Active Substance: ATORVASTATIN
  6. ZOLPEDEM ER [Concomitant]
  7. ASPIRIN. [Concomitant]
     Active Substance: ASPIRIN

REACTIONS (1)
  - Proctalgia [None]

NARRATIVE: CASE EVENT DATE: 20160516
